FAERS Safety Report 8799254 (Version 2)
Quarter: 2012Q4

REPORT INFORMATION
  Report Type: 
  Country: IT (occurrence: IT)
  Receive Date: 20120919
  Receipt Date: 20121128
  Transmission Date: 20130627
  Serious: Yes (Death)
  Sender: FDA-Public Use
  Company Number: IT-CELGENEUS-083-21880-12091360

PATIENT
  Sex: Female

DRUGS (3)
  1. REVLIMID [Suspect]
     Indication: MYELOMA
     Dosage: 25 Milligram
     Route: 048
     Dates: start: 201009, end: 201106
  2. BORTEZOMIB [Concomitant]
     Indication: MULTIPLE MYELOMA
     Route: 065
     Dates: start: 201009, end: 201110
  3. DEXAMETHASONE [Concomitant]
     Indication: MULTIPLE MYELOMA
     Route: 065
     Dates: start: 201009, end: 201110

REACTIONS (3)
  - Graft versus host disease in skin [Fatal]
  - Thrombotic thrombocytopenic purpura [Fatal]
  - Pneumonia [Fatal]
